FAERS Safety Report 16169358 (Version 1)
Quarter: 2019Q2

REPORT INFORMATION
  Report Type: Spontaneous
  Country: US (occurrence: US)
  Receive Date: 20190408
  Receipt Date: 20190408
  Transmission Date: 20190711
  Serious: No
  Sender: FDA-Public Use
  Company Number: US-PROVELL PHARMACEUTICALS-2065452

PATIENT

DRUGS (1)
  1. EUTHYROX [Suspect]
     Active Substance: LEVOTHYROXINE SODIUM

REACTIONS (1)
  - Therapeutic response decreased [Unknown]
